FAERS Safety Report 10008529 (Version 1)
Quarter: 2014Q1

REPORT INFORMATION
  Report Type: Spontaneous
  Country: US (occurrence: US)
  Receive Date: 20140313
  Receipt Date: 20140313
  Transmission Date: 20141002
  Serious: No
  Sender: FDA-Public Use
  Company Number: US-009507513-1403USA002654

PATIENT
  Age: 38 Year
  Sex: Female

DRUGS (7)
  1. JANUVIA [Suspect]
     Dosage: UNK
     Route: 048
     Dates: start: 20140225
  2. METFORMIN [Concomitant]
  3. LIPITOR [Concomitant]
  4. ASPIRIN [Concomitant]
  5. LISINOPRIL [Concomitant]
  6. VERAPAMIL [Concomitant]
  7. COLESTID [Concomitant]

REACTIONS (2)
  - Diarrhoea [Unknown]
  - Abdominal pain upper [Unknown]
